FAERS Safety Report 16342765 (Version 5)
Quarter: 2019Q3

REPORT INFORMATION
  Report Type: Report from Study
  Country: DE (occurrence: DE)
  Receive Date: 20190522
  Receipt Date: 20190906
  Transmission Date: 20191004
  Serious: Yes (Hospitalization)
  Sender: FDA-Public Use
  Company Number: PHHO2019DE004171

PATIENT
  Age: 54 Year
  Sex: Female
  Weight: 54.6 kg

DRUGS (23)
  1. LAG525 [Suspect]
     Active Substance: IERAMILIMAB
     Indication: TRIPLE NEGATIVE BREAST CANCER
     Dosage: 400 MG, Q3W
     Route: 042
     Dates: start: 20190207, end: 20190404
  2. APREPITANT. [Concomitant]
     Active Substance: APREPITANT
     Indication: PROPHYLAXIS
     Dosage: UNK
     Route: 065
     Dates: start: 20190207, end: 20190404
  3. TORASEMIDE [Concomitant]
     Active Substance: TORSEMIDE
     Indication: OEDEMA PERIPHERAL
     Dosage: UNK
     Route: 065
     Dates: start: 20181025
  4. L-THYROXINE [Concomitant]
     Active Substance: LEVOTHYROXINE
     Indication: HYPOTHYROIDISM
     Dosage: UNK
     Route: 065
     Dates: start: 20190405
  5. LEVETIRACETAM. [Concomitant]
     Active Substance: LEVETIRACETAM
     Indication: PROPHYLAXIS
     Dosage: UNK
     Route: 065
     Dates: start: 20180901
  6. METAMIZOLE [Concomitant]
     Active Substance: METAMIZOLE
     Indication: PLEURITIC PAIN
     Dosage: UNK
     Route: 065
     Dates: start: 20180801
  7. PREDNISOLON [Concomitant]
     Active Substance: PREDNISOLONE
     Indication: BLOOD CREATINE PHOSPHOKINASE INCREASED
     Dosage: 50 MG, UNK
     Route: 048
     Dates: start: 20190414, end: 20190520
  8. PREDNISOLON [Concomitant]
     Active Substance: PREDNISOLONE
     Indication: MYOCARDITIS
  9. CARBOPLATIN. [Suspect]
     Active Substance: CARBOPLATIN
     Indication: TRIPLE NEGATIVE BREAST CANCER
     Dosage: 480 MG, Q3W
     Route: 042
     Dates: start: 20190207, end: 20190404
  10. PANTOPRAZOLE [Concomitant]
     Active Substance: PANTOPRAZOLE
     Indication: PROPHYLAXIS
     Dosage: UNK
     Route: 065
     Dates: start: 20180901
  11. FORTECORTIN [Concomitant]
     Active Substance: DEXAMETHASONE
     Indication: PROPHYLAXIS
     Dosage: UNK
     Route: 065
     Dates: start: 20190207, end: 20190404
  12. BISOPROLOL [Concomitant]
     Active Substance: BISOPROLOL
     Indication: BLOOD CREATINE PHOSPHOKINASE INCREASED
     Dosage: UNK
     Route: 065
     Dates: start: 20190416
  13. SILAPO [Concomitant]
     Dosage: UNK
     Route: 065
     Dates: start: 20190404, end: 20190411
  14. ALOXI [Concomitant]
     Active Substance: PALONOSETRON HYDROCHLORIDE
     Indication: PROPHYLAXIS
     Dosage: UNK
     Route: 065
     Dates: start: 20190207, end: 20190404
  15. ERYTHROCYTES [Concomitant]
     Active Substance: HUMAN RED BLOOD CELL
     Indication: ANAEMIA
     Dosage: UNK
     Route: 065
     Dates: start: 20190328, end: 20190328
  16. PARACODIN [Concomitant]
     Indication: COUGH
     Dosage: UNK
     Route: 065
     Dates: start: 20180901
  17. FOLIC ACID. [Concomitant]
     Active Substance: FOLIC ACID
     Indication: PROPHYLAXIS
     Dosage: UNK
     Route: 065
     Dates: start: 20190416
  18. ONDANSETRON [Concomitant]
     Active Substance: ONDANSETRON
     Indication: PROPHYLAXIS OF NAUSEA AND VOMITING
     Dosage: UNK
     Route: 065
     Dates: start: 20181001
  19. COLECALCIFEROL [Concomitant]
     Active Substance: CHOLECALCIFEROL
     Indication: PROPHYLAXIS
     Dosage: UNK
     Route: 065
     Dates: start: 20190416
  20. SILAPO [Concomitant]
     Indication: ANAEMIA
     Dosage: UNK
     Route: 065
     Dates: start: 20190221, end: 20190328
  21. MACROGOL [Concomitant]
     Active Substance: POLYETHYLENE GLYCOLS
     Indication: CONSTIPATION PROPHYLAXIS
     Dosage: UNK
     Route: 065
     Dates: start: 20180901
  22. OXYCODONE [Concomitant]
     Active Substance: OXYCODONE
     Indication: PAIN
     Dosage: UNK
     Route: 065
     Dates: start: 20180801
  23. TYROTHRICIN [Concomitant]
     Active Substance: TYROTHRICIN
     Indication: DYSPHAGIA
     Dosage: UNK
     Route: 065
     Dates: start: 20190307

REACTIONS (1)
  - Myocarditis [Not Recovered/Not Resolved]

NARRATIVE: CASE EVENT DATE: 20190411
